FAERS Safety Report 4804483-4 (Version None)
Quarter: 2005Q4

REPORT INFORMATION
  Report Type: 
  Country: None (occurrence: None)
  Receive Date: 20051017
  Receipt Date: 20051003
  Transmission Date: 20060501
  Serious: Yes (Hospitalization, Other)
  Sender: FDA-Public Use
  Company Number: 2005137512

PATIENT
  Age: 36 Year
  Sex: Male

DRUGS (2)
  1. MEDROL [Suspect]
     Indication: ILL-DEFINED DISORDER
     Dosage: 8 MG, ORAL
     Route: 048
     Dates: start: 19900615
  2. HUMIRA [Suspect]
     Indication: ILL-DEFINED DISORDER
     Dosage: SUBCUTANEOUS
     Route: 058
     Dates: start: 20040915, end: 20050724

REACTIONS (6)
  - JOINT ABSCESS [None]
  - MEDICAL DEVICE COMPLICATION [None]
  - OSTEITIS [None]
  - OSTEOMYELITIS [None]
  - SEPSIS [None]
  - STAPHYLOCOCCAL INFECTION [None]
